FAERS Safety Report 20925317 (Version 1)
Quarter: 2022Q2

REPORT INFORMATION
  Report Type: Spontaneous
  Country: US (occurrence: None)
  Receive Date: 20220607
  Receipt Date: 20220607
  Transmission Date: 20220721
  Serious: Yes (Life-Threatening)
  Sender: FDA-Public Use
  Company Number: None

PATIENT
  Age: 81 Year
  Sex: Male

DRUGS (2)
  1. VANCOMYCIN [Suspect]
     Active Substance: VANCOMYCIN
     Indication: Immunisation
     Dosage: OTHER STRENGTH : 1.25GM/VIAL;?
     Dates: start: 20220422, end: 20220422
  2. AZTREONAM [Suspect]
     Active Substance: AZTREONAM

REACTIONS (3)
  - Anaphylactic reaction [None]
  - Sepsis [None]
  - Acute respiratory failure [None]

NARRATIVE: CASE EVENT DATE: 20220422
